FAERS Safety Report 24570991 (Version 1)
Quarter: 2024Q4

REPORT INFORMATION
  Report Type: Spontaneous
  Country: US (occurrence: US)
  Receive Date: 20241101
  Receipt Date: 20241101
  Transmission Date: 20250115
  Serious: Yes (Hospitalization, Other)
  Sender: LUPIN
  Company Number: US-LUPIN PHARMACEUTICALS INC.-2024-10724

PATIENT
  Age: 90 Year
  Sex: Female

DRUGS (2)
  1. MORPHINE [Interacting]
     Active Substance: MORPHINE
     Indication: Fracture pain
     Dosage: 70 MICROGRAM/KILOGRAM
     Route: 065
  2. KETAMINE [Interacting]
     Active Substance: KETAMINE
     Indication: Sedative therapy
     Dosage: 2 MILLIGRAM/KILOGRAM
     Route: 065

REACTIONS (3)
  - Apnoea [Recovered/Resolved]
  - Drug interaction [Unknown]
  - Dyspnoea [Recovered/Resolved]
